FAERS Safety Report 17142223 (Version 1)
Quarter: 2019Q4

REPORT INFORMATION
  Report Type: Spontaneous
  Country: CA (occurrence: CA)
  Receive Date: 20191211
  Receipt Date: 20191211
  Transmission Date: 20200122
  Serious: Yes (Other)
  Sender: FDA-Public Use
  Company Number: CA-PFIZER INC-2019535672

PATIENT
  Sex: Female

DRUGS (7)
  1. CELEBREX [Suspect]
     Active Substance: CELECOXIB
     Dosage: 400 MG, UNK
  2. PREDNISONE. [Suspect]
     Active Substance: PREDNISONE
     Dosage: UNK
  3. METHOTREXATE SODIUM. [Suspect]
     Active Substance: METHOTREXATE SODIUM
     Dosage: 25 MG, WEEKLY
     Route: 058
  4. DULOXETINE HYDROCHLORIDE. [Suspect]
     Active Substance: DULOXETINE HYDROCHLORIDE
  5. CODEINE [Suspect]
     Active Substance: CODEINE
  6. SULFASALAZINE. [Suspect]
     Active Substance: SULFASALAZINE
  7. LEFLUNOMIDE. [Suspect]
     Active Substance: LEFLUNOMIDE

REACTIONS (9)
  - Abdominal discomfort [Unknown]
  - Swelling of eyelid [Unknown]
  - Vomiting [Unknown]
  - Drug ineffective [Unknown]
  - Joint swelling [Unknown]
  - Pruritus allergic [Unknown]
  - Dry mouth [Unknown]
  - Rheumatoid arthritis [Unknown]
  - Swollen tongue [Unknown]
